FAERS Safety Report 8600829-X (Version None)
Quarter: 2012Q3

REPORT INFORMATION
  Report Type: 
  Country: None (occurrence: None)
  Receive Date: 20120817
  Receipt Date: 20120807
  Transmission Date: 20120928
  Serious: Yes (Other)
  Sender: FDA-Public Use
  Company Number: BR-SANOFI-AVENTIS-2011SA068485

PATIENT
  Sex: Female
  Weight: 3.6 kg

DRUGS (4)
  1. ENOXAPARIN SODIUM [Suspect]
     Dosage: FORM:: 1 AMPOULE/NIGHT.
     Route: 064
     Dates: start: 20110907, end: 20120521
  2. ESTRADIOL VALERATE [Concomitant]
     Dosage: BEFORE BEDTIME.
     Route: 064
     Dates: start: 20110907, end: 20120521
  3. ENDOFOLIN [Concomitant]
     Dosage: START DATE: AUGUST
     Route: 064
     Dates: end: 20120521
  4. PROGESTERONE [Concomitant]
     Dosage: 1 APPLICATION IN THE MORNING/DAY.
     Route: 064
     Dates: start: 20110907, end: 20120521

REACTIONS (2)
  - SKIN DISCOLOURATION [None]
  - MATERNAL EXPOSURE DURING PREGNANCY [None]
